FAERS Safety Report 4773034-5 (Version None)
Quarter: 2005Q3

REPORT INFORMATION
  Report Type: 
  Country: None (occurrence: None)
  Receive Date: 20050919
  Receipt Date: 20050708
  Transmission Date: 20060218
  Serious: Yes (Other)
  Sender: FDA-Public Use
  Company Number: US-GLAXOSMITHKLINE-A0565531A

PATIENT
  Age: 80 Year
  Sex: Female

DRUGS (3)
  1. ECOTRIN ADULT STRENGTH LOW 81MG [Suspect]
     Route: 048
     Dates: start: 20050801
  2. ASPIRIN [Suspect]
     Route: 048
  3. PLAVIX [Concomitant]

REACTIONS (2)
  - CONTUSION [None]
  - HAEMORRHAGE [None]
